FAERS Safety Report 13434895 (Version 1)
Quarter: 2017Q2

REPORT INFORMATION
  Report Type: Spontaneous
  Country: SE (occurrence: SE)
  Receive Date: 20170412
  Receipt Date: 20170412
  Transmission Date: 20170830
  Serious: Yes (Hospitalization)
  Sender: FDA-Public Use
  Company Number: ALCN2017SE002606

PATIENT
  Age: 72 Year
  Sex: Male

DRUGS (2)
  1. ISOPTO-MAXIDEX [Concomitant]
     Indication: PRODUCT USED FOR UNKNOWN INDICATION
     Route: 065
  2. NEVANAC [Suspect]
     Active Substance: NEPAFENAC
     Indication: POST PROCEDURAL INFLAMMATION
     Dosage: 1 GTT, TID
     Route: 047
     Dates: start: 20170313, end: 20170326

REACTIONS (1)
  - Ulcerative keratitis [Unknown]

NARRATIVE: CASE EVENT DATE: 20170325
